FAERS Safety Report 6598704-8 (Version None)
Quarter: 2010Q1

REPORT INFORMATION
  Report Type: 
  Country: None (occurrence: None)
  Receive Date: 20100224
  Receipt Date: 20100105
  Transmission Date: 20100710
  Serious: Yes (Death)
  Sender: FDA-Public Use
  Company Number: US-TYCO HEALTHCARE/MALLINCKRODT-T201000481

PATIENT
  Age: 18 Year
  Sex: Male

DRUGS (4)
  1. OXYCODONE [Suspect]
     Route: 065
  2. CHLORPHENIRAMINE MALEATE [Suspect]
     Route: 065
  3. DEXTROMETHORPHAN [Suspect]
     Route: 065
  4. ALPRAZOLAM [Suspect]
     Route: 065

REACTIONS (1)
  - CARDIO-RESPIRATORY ARREST [None]
